FAERS Safety Report 18724169 (Version 3)
Quarter: 2021Q1

REPORT INFORMATION
  Report Type: Spontaneous
  Country: US (occurrence: US)
  Receive Date: 20210111
  Receipt Date: 20210205
  Transmission Date: 20210419
  Serious: No
  Sender: FDA-Public Use
  Company Number: US-ASTRAZENECA-2021A001919

PATIENT
  Sex: Male
  Weight: 158.8 kg

DRUGS (1)
  1. BYDUREON BCISE [Suspect]
     Active Substance: EXENATIDE
     Indication: TYPE 2 DIABETES MELLITUS
     Route: 058
     Dates: start: 2020

REACTIONS (4)
  - Device malfunction [Unknown]
  - Injection site mass [Recovered/Resolved]
  - Incorrect dose administered [Unknown]
  - Device leakage [Unknown]
